FAERS Safety Report 8606847-X (Version None)
Quarter: 2012Q3

REPORT INFORMATION
  Report Type: 
  Country: None (occurrence: None)
  Receive Date: 20120820
  Receipt Date: 20120816
  Transmission Date: 20120928
  Serious: No
  Sender: FDA-Public Use
  Company Number: US-BAYER-2012-085235

PATIENT
  Age: 54 Year
  Sex: Female
  Weight: 59 kg

DRUGS (3)
  1. THYROID PREPARATIONS [Concomitant]
     Indication: HYPOTHYROIDISM
  2. ALEVE (CAPLET) [Suspect]
     Indication: HEADACHE
     Dosage: 1 DF, QD
     Route: 048
     Dates: start: 20120811, end: 20120816
  3. VITAMIN TAB [Concomitant]

REACTIONS (1)
  - HEADACHE [None]
